FAERS Safety Report 4707715-6 (Version None)
Quarter: 2005Q2

REPORT INFORMATION
  Report Type: 
  Country: None (occurrence: None)
  Receive Date: 20050629
  Receipt Date: 20050418
  Transmission Date: 20051028
  Serious: No
  Sender: FDA-Public Use
  Company Number: 05P-163-0297686-00

PATIENT
  Age: 65 Year
  Sex: Female

DRUGS (9)
  1. HUMIRA [Suspect]
     Indication: PSORIATIC ARTHROPATHY
     Dosage: 40 MG, 1 IN 2 WK, SUBCUTANEOUS
     Route: 058
     Dates: start: 20030101
  2. HUMIRA [Suspect]
     Indication: PSORIATIC ARTHROPATHY
     Dosage: 40 MG, 1 IN 2 WK, SUBCUTANEOUS
     Route: 058
     Dates: start: 20041101
  3. TREXAL [Concomitant]
  4. DILTIAZEM HYDROCHLORIDE [Concomitant]
  5. FOLIC ACID [Concomitant]
  6. CLOPIDOGREL BISULFATE [Concomitant]
  7. MULTI-VITAMINS [Concomitant]
  8. POTASSIUM CHLORIDE [Concomitant]
  9. MAGNESIUM [Concomitant]

REACTIONS (1)
  - OVERDOSE [None]
